FAERS Safety Report 17856936 (Version 2)
Quarter: 2020Q3

REPORT INFORMATION
  Report Type: Report from Study
  Country: GB (occurrence: GB)
  Receive Date: 20200603
  Receipt Date: 20200804
  Transmission Date: 20201103
  Serious: Yes (Other)
  Sender: FDA-Public Use
  Company Number: NVSC2020GB014378

PATIENT
  Sex: Female

DRUGS (1)
  1. HYRIMOZ [Suspect]
     Active Substance: ADALIMUMAB-ADAZ
     Indication: RHEUMATOID ARTHRITIS
     Dosage: 1 DF, Q2W (40MG/0.8ML)
     Route: 058
     Dates: start: 20190627

REACTIONS (13)
  - Decreased appetite [Not Recovered/Not Resolved]
  - Asthenia [Unknown]
  - Dysgeusia [Unknown]
  - Weight decreased [Not Recovered/Not Resolved]
  - Arthralgia [Not Recovered/Not Resolved]
  - Hypertension [Unknown]
  - Anosmia [Unknown]
  - Parosmia [Unknown]
  - Insomnia [Unknown]
  - Ageusia [Not Recovered/Not Resolved]
  - Eating disorder [Unknown]
  - Loss of consciousness [Unknown]
  - Pain [Unknown]

NARRATIVE: CASE EVENT DATE: 2019
